FAERS Safety Report 23399695 (Version 3)
Quarter: 2024Q1

REPORT INFORMATION
  Report Type: Spontaneous
  Country: JP (occurrence: JP)
  Receive Date: 20240113
  Receipt Date: 20240125
  Transmission Date: 20240410
  Serious: Yes (Hospitalization)
  Sender: FDA-Public Use
  Company Number: JP-UCBSA-2023061561

PATIENT
  Age: 70 Year
  Sex: Female

DRUGS (3)
  1. VIMPAT [Suspect]
     Active Substance: LACOSAMIDE
     Indication: Partial seizures
     Dosage: 300 MILLIGRAM PER DAY
     Route: 048
     Dates: end: 202311
  2. VIMPAT [Suspect]
     Active Substance: LACOSAMIDE
     Dosage: 350 MILLIGRAM PER DAY
     Route: 048
     Dates: start: 202311, end: 20231228
  3. MAGNESIUM OXIDE [Concomitant]
     Active Substance: MAGNESIUM OXIDE
     Indication: Constipation
     Dosage: UNK

REACTIONS (5)
  - Dysphagia [Not Recovered/Not Resolved]
  - Muscle twitching [Recovering/Resolving]
  - Sputum increased [Not Recovered/Not Resolved]
  - Sputum retention [Not Recovered/Not Resolved]
  - Productive cough [Not Recovered/Not Resolved]

NARRATIVE: CASE EVENT DATE: 20231228
